FAERS Safety Report 5816947-5 (Version None)
Quarter: 2008Q3

REPORT INFORMATION
  Report Type: 
  Country: None (occurrence: None)
  Receive Date: 20080722
  Receipt Date: 20080711
  Transmission Date: 20090109
  Serious: Yes (Other)
  Sender: FDA-Public Use
  Company Number: PHHY2008FR11607

PATIENT
  Sex: Female

DRUGS (7)
  1. TAREG [Suspect]
     Indication: HYPERTENSION
     Dosage: 80 MG, QD
     Route: 048
     Dates: start: 20080331, end: 20080329
  2. TAREG [Suspect]
     Dosage: 80 MG/DAY
     Dates: start: 20080331
  3. COLECALCIFEROL [Concomitant]
  4. TAHOR [Concomitant]
  5. KARDEGIC [Concomitant]
  6. PNEUMOREL [Concomitant]
     Dosage: 80 MG, TID
  7. VASTAREL [Concomitant]
     Dosage: 35 MG, BID

REACTIONS (3)
  - ANAPHYLACTOID REACTION [None]
  - RASH [None]
  - THROAT TIGHTNESS [None]
